FAERS Safety Report 6826320-9 (Version None)
Quarter: 2010Q3

REPORT INFORMATION
  Report Type: 
  Country: None (occurrence: None)
  Receive Date: 20100709
  Receipt Date: 20100704
  Transmission Date: 20110219
  Serious: Yes (Death, Other)
  Sender: FDA-Public Use
  Company Number: PHHO2010SA10018

PATIENT
  Age: 49 Year
  Sex: Female

DRUGS (2)
  1. AFINITOR [Suspect]
     Indication: METASTATIC RENAL CELL CARCINOMA
     Dosage: 10 MG
  2. AFINITOR [Suspect]
     Dosage: 5 MG

REACTIONS (3)
  - DEATH [None]
  - DIARRHOEA [None]
  - RASH [None]
